FAERS Safety Report 13829439 (Version 1)
Quarter: 2017Q3

REPORT INFORMATION
  Report Type: Spontaneous
  Country: US (occurrence: US)
  Receive Date: 20170803
  Receipt Date: 20170803
  Transmission Date: 20171127
  Serious: No
  Sender: FDA-Public Use
  Company Number: None

PATIENT

DRUGS (1)
  1. HUMULIN R [Suspect]
     Active Substance: INSULIN HUMAN

REACTIONS (7)
  - Blood glucose decreased [None]
  - Needle issue [None]
  - Incorrect dose administered [None]
  - Hypotension [None]
  - Unresponsive to stimuli [None]
  - Drug dispensing error [None]
  - Wrong technique in device usage process [None]
